FAERS Safety Report 9219467 (Version 4)
Quarter: 2013Q3

REPORT INFORMATION
  Report Type: Spontaneous
  Country: US (occurrence: US)
  Receive Date: 20130409
  Receipt Date: 20130823
  Transmission Date: 20140515
  Serious: Yes (Hospitalization, Other)
  Sender: FDA-Public Use
  Company Number: US-PFIZER INC-2013107671

PATIENT
  Age: 57 Year
  Sex: Female

DRUGS (10)
  1. CLINDAMYCIN HCL [Suspect]
     Indication: TOOTH INFECTION
     Dosage: 150 MG, 2X/DAY
     Dates: start: 20120615
  2. CLINDAMYCIN HCL [Suspect]
     Dosage: 150 MG, 1X/DAY
  3. FLAGYL [Suspect]
     Indication: CLOSTRIDIUM DIFFICILE INFECTION
     Dosage: 500 MG, 2X/DAY
     Dates: start: 20120713
  4. FLAGYL [Suspect]
     Dosage: 500 MG, 2X/DAY
     Dates: start: 20120917
  5. VANCOMYCIN HCL [Suspect]
     Indication: CLOSTRIDIUM DIFFICILE INFECTION
     Dosage: UNK, 2X/DAY
     Dates: start: 2012
  6. CLINDAMYCIN [Suspect]
     Indication: TOOTH INFECTION
     Dosage: 300 MG, 1X/DAY
     Route: 048
     Dates: start: 20120521
  7. CLINDAMYCIN [Suspect]
     Dosage: 200 MG, 1X/DAY
  8. DIFICID [Suspect]
     Indication: CLOSTRIDIUM DIFFICILE INFECTION
     Dosage: UNK, 2X/DAY
  9. DIFICID [Suspect]
     Dosage: UNK
  10. CLONAZEPAM [Concomitant]
     Indication: ANXIETY
     Dosage: 0.05 MG, 1X/DAY

REACTIONS (19)
  - Clostridium difficile infection [Unknown]
  - Aphagia [Unknown]
  - Suicidal ideation [Unknown]
  - Transplant [Unknown]
  - Apparent death [Unknown]
  - Depression [Unknown]
  - Liver disorder [Unknown]
  - Local swelling [Unknown]
  - Neuropathy peripheral [Unknown]
  - Diarrhoea [Not Recovered/Not Resolved]
  - Activities of daily living impaired [Unknown]
  - Drug ineffective [Unknown]
  - Blepharitis [Unknown]
  - Malaise [Unknown]
  - Erythema [Unknown]
  - Weight decreased [Unknown]
  - Vomiting [Unknown]
  - Nausea [Unknown]
  - Nightmare [Unknown]
